FAERS Safety Report 25093566 (Version 3)
Quarter: 2025Q2

REPORT INFORMATION
  Report Type: Report from Study
  Country: US (occurrence: US)
  Receive Date: 20250319
  Receipt Date: 20250620
  Transmission Date: 20250717
  Serious: Yes (Other)
  Sender: ABBVIE
  Company Number: US-ABBVIE-6183379

PATIENT
  Age: 93 Year
  Sex: Male

DRUGS (6)
  1. IMBRUVICA [Suspect]
     Active Substance: IBRUTINIB
     Indication: Non-Hodgkin^s lymphoma
     Dosage: ONLY TAKE IT 1 IMBRUIVICA TABLET EACH DAY FROM MONDAY TO FRIDAY
     Route: 048
     Dates: start: 202307, end: 202307
  2. IMBRUVICA [Suspect]
     Active Substance: IBRUTINIB
     Indication: Non-Hodgkin^s lymphoma
     Dosage: FROM MONDAY TO FRIDAY
     Route: 048
     Dates: start: 20230912
  3. LUPRON [Concomitant]
     Active Substance: LEUPROLIDE ACETATE
     Indication: Prostate cancer
  4. RITUXAN [Concomitant]
     Active Substance: RITUXIMAB
     Indication: Product used for unknown indication
  5. IMBRUVICA [Suspect]
     Active Substance: IBRUTINIB
     Indication: B-cell small lymphocytic lymphoma
     Dosage: ONLY TAKE IT 1 IMBRUVICA TABLET EACH DAY FROM MONDAY TO FRIDAY/LAST ADMIN DATE: 2023
     Route: 048
     Dates: start: 202307
  6. IMBRUVICA [Suspect]
     Active Substance: IBRUTINIB
     Indication: B-cell small lymphocytic lymphoma
     Route: 048

REACTIONS (7)
  - Neoplasm malignant [Recovered/Resolved]
  - Haemoglobin abnormal [Unknown]
  - Impaired healing [Recovered/Resolved]
  - Skin cancer [Unknown]
  - White blood cell count decreased [Unknown]
  - Nasopharyngitis [Recovering/Resolving]
  - Productive cough [Recovering/Resolving]
